FAERS Safety Report 8893262 (Version 1)
Quarter: 2012Q4

REPORT INFORMATION
  Report Type: 
  Country: US (occurrence: US)
  Receive Date: 20121107
  Receipt Date: 20121107
  Transmission Date: 20130627
  Serious: No
  Sender: FDA-Public Use
  Company Number: US-AMGEN-USASP2011051674

PATIENT
  Age: 63 Year
  Sex: Female

DRUGS (3)
  1. ENBREL [Suspect]
     Indication: PSORIATIC ARTHROPATHY
     Dosage: 50 mg, 2 times/wk
     Dates: start: 20100630, end: 20110401
  2. ENBREL [Suspect]
     Indication: PSORIASIS
  3. PLAQUENIL [Concomitant]
     Dosage: 2 mg, qd
     Dates: start: 2007

REACTIONS (2)
  - Drug effect incomplete [Not Recovered/Not Resolved]
  - Influenza like illness [Not Recovered/Not Resolved]
